FAERS Safety Report 9929287 (Version 1)
Quarter: 2014Q1

REPORT INFORMATION
  Report Type: Spontaneous
  Country: US (occurrence: US)
  Receive Date: 20140227
  Receipt Date: 20140227
  Transmission Date: 20141002
  Serious: Yes (Death)
  Sender: FDA-Public Use
  Company Number: US-INCYTE CORPORATION-2014IN000484

PATIENT
  Age: 85 Year
  Sex: Female

DRUGS (11)
  1. JAKAFI [Suspect]
     Dosage: 5 MG, QD
     Route: 048
     Dates: start: 20130815
  2. CALCIUM [Concomitant]
  3. ASPIRIN [Concomitant]
  4. NEXIUM                             /01479302/ [Concomitant]
  5. CIPROFLOXACIN [Concomitant]
  6. GABAPENTIN [Concomitant]
  7. LEVOFLOXACIN [Concomitant]
  8. NITROFURANTOIN [Concomitant]
  9. PHENAZOPYRIDINE [Concomitant]
  10. TRAMADOL [Concomitant]
  11. ZOLPIDEM [Concomitant]

REACTIONS (1)
  - Death [Fatal]
